FAERS Safety Report 4918019-0 (Version None)
Quarter: 2006Q1

REPORT INFORMATION
  Report Type: 
  Country: None (occurrence: None)
  Receive Date: 20060221
  Receipt Date: 20050930
  Transmission Date: 20060701
  Serious: Yes (Death)
  Sender: FDA-Public Use
  Company Number: US-MERCK-0510USA01956

PATIENT
  Age: 74 Year
  Sex: Female
  Weight: 59 kg

DRUGS (12)
  1. VIOXX [Suspect]
     Indication: ARTHRITIS
     Route: 048
     Dates: start: 20000216, end: 20000223
  2. ALPRAZOLAM [Concomitant]
     Route: 065
  3. ATENOLOL [Concomitant]
     Route: 065
  4. CARBAMAZEPINE [Concomitant]
     Route: 065
  5. ZOLOFT [Concomitant]
     Route: 065
  6. CHLORTHALIDONE [Concomitant]
     Route: 065
  7. MONOPRIL [Concomitant]
     Route: 065
  8. NASACORT [Concomitant]
     Route: 065
  9. [THERAPY UNSPECIFIED] [Concomitant]
     Route: 065
  10. PREMARIN [Concomitant]
     Route: 065
  11. PROPOXYPHENE HYDROCHLORIDE [Concomitant]
     Route: 065
  12. SINEMET CR [Concomitant]
     Route: 065

REACTIONS (2)
  - HYPERTENSION [None]
  - MYOCARDIAL INFARCTION [None]
